FAERS Safety Report 23115346 (Version 1)
Quarter: 2023Q4

REPORT INFORMATION
  Report Type: Spontaneous
  Country: US (occurrence: None)
  Receive Date: 20231026
  Receipt Date: 20231026
  Transmission Date: 20240110
  Serious: Yes (Death)
  Sender: FDA-Public Use
  Company Number: None

PATIENT
  Age: 66 Year
  Sex: Male

DRUGS (1)
  1. LEVETIRACETAM [Suspect]
     Active Substance: LEVETIRACETAM

REACTIONS (11)
  - Atrial fibrillation [None]
  - Pneumonia [None]
  - Renal impairment [None]
  - Blood potassium increased [None]
  - Renal failure [None]
  - Haemofiltration [None]
  - Myoclonus [None]
  - Hypoxic-ischaemic encephalopathy [None]
  - Encephalopathy [None]
  - Cardio-respiratory arrest [None]
  - Refusal of treatment by patient [None]

NARRATIVE: CASE EVENT DATE: 20230821
